FAERS Safety Report 8277399-1 (Version None)
Quarter: 2012Q2

REPORT INFORMATION
  Report Type: 
  Country: None (occurrence: None)
  Receive Date: 20120412
  Receipt Date: 20120409
  Transmission Date: 20120825
  Serious: Yes (Other)
  Sender: FDA-Public Use
  Company Number: PHHY2012ES026764

PATIENT
  Age: 23 Year
  Sex: Male

DRUGS (3)
  1. GILENYA [Suspect]
     Route: 048
  2. GABAPENTIN [Concomitant]
     Indication: PAIN
  3. GILENYA [Suspect]
     Indication: MULTIPLE SCLEROSIS
     Dosage: 0.5 MG, DAILY
     Route: 048
     Dates: start: 20120207, end: 20120327

REACTIONS (3)
  - MACULAR PIGMENTATION [None]
  - VISION BLURRED [None]
  - EYE PAIN [None]
